FAERS Safety Report 16786919 (Version 3)
Quarter: 2019Q3

REPORT INFORMATION
  Report Type: Spontaneous
  Country: CN (occurrence: CN)
  Receive Date: 20190909
  Receipt Date: 20190923
  Transmission Date: 20191005
  Serious: Yes (Death, Other)
  Sender: FDA-Public Use
  Company Number: CN-ASTRAZENECA-2019SF27238

PATIENT
  Age: 64 Year
  Sex: Male

DRUGS (1)
  1. IRESSA [Suspect]
     Active Substance: GEFITINIB
     Indication: NON-SMALL CELL LUNG CANCER
     Route: 048
     Dates: start: 201805, end: 201905

REACTIONS (4)
  - Metastases to meninges [Fatal]
  - Malignant neoplasm progression [Unknown]
  - Dizziness [Not Recovered/Not Resolved]
  - Vomiting [Unknown]
